FAERS Safety Report 17620784 (Version 1)
Quarter: 2020Q2

REPORT INFORMATION
  Report Type: Spontaneous
  Country: GB (occurrence: GB)
  Receive Date: 20200403
  Receipt Date: 20200403
  Transmission Date: 20200713
  Serious: Yes (Hospitalization)
  Sender: FDA-Public Use
  Company Number: NVSC2020GB091156

PATIENT
  Sex: Female

DRUGS (2)
  1. TEGRETOL [Suspect]
     Active Substance: CARBAMAZEPINE
     Indication: PRODUCT USED FOR UNKNOWN INDICATION
     Dosage: 400 MG
     Route: 065
  2. TEGRETOL [Suspect]
     Active Substance: CARBAMAZEPINE
     Dosage: 3.5 DF, BID
     Route: 065

REACTIONS (7)
  - Speech disorder [Unknown]
  - Myocardial infarction [Unknown]
  - Incorrect dose administered [Unknown]
  - Chest pain [Unknown]
  - Wrong technique in product usage process [Unknown]
  - Seizure [Unknown]
  - Stress [Unknown]

NARRATIVE: CASE EVENT DATE: 201910
